FAERS Safety Report 20109965 (Version 1)
Quarter: 2021Q4

REPORT INFORMATION
  Report Type: Report from Study
  Country: JP (occurrence: JP)
  Receive Date: 20211124
  Receipt Date: 20211124
  Transmission Date: 20220304
  Serious: Yes (Hospitalization)
  Sender: FDA-Public Use
  Company Number: JP-JNJFOC-A-CH2019-193596

PATIENT
  Age: 1 Year
  Sex: Female
  Weight: 8 kg

DRUGS (47)
  1. UPTRAVI [Suspect]
     Active Substance: SELEXIPAG
     Indication: Pulmonary arterial hypertension
     Dosage: 0.59 MG, BID
     Route: 048
     Dates: start: 20190329, end: 20190418
  2. UPTRAVI [Suspect]
     Active Substance: SELEXIPAG
     Dosage: 0.03 MG, BID
     Route: 048
     Dates: start: 20181231, end: 20190107
  3. UPTRAVI [Suspect]
     Active Substance: SELEXIPAG
     Dosage: 0.118 MG, BID
     Route: 048
     Dates: start: 20190108, end: 20190114
  4. UPTRAVI [Suspect]
     Active Substance: SELEXIPAG
     Dosage: 0.18 MG, BID
     Route: 048
     Dates: start: 20190115, end: 20190121
  5. UPTRAVI [Suspect]
     Active Substance: SELEXIPAG
     Dosage: 0.24 MG, BID
     Route: 048
     Dates: start: 20190122, end: 20190128
  6. UPTRAVI [Suspect]
     Active Substance: SELEXIPAG
     Dosage: 0.3 MG, BID
     Route: 048
     Dates: start: 20190129, end: 20190204
  7. UPTRAVI [Suspect]
     Active Substance: SELEXIPAG
     Dosage: 0.36 MG, BID
     Route: 048
     Dates: start: 20190205, end: 20190211
  8. UPTRAVI [Suspect]
     Active Substance: SELEXIPAG
     Dosage: 0.42 MG, BID
     Route: 048
     Dates: start: 20190212, end: 20190218
  9. UPTRAVI [Suspect]
     Active Substance: SELEXIPAG
     Dosage: 0.48 MG, BID
     Route: 048
     Dates: start: 20190219, end: 20190225
  10. UPTRAVI [Suspect]
     Active Substance: SELEXIPAG
     Dosage: 0.544 MG, BID
     Route: 048
     Dates: start: 20190226, end: 20190304
  11. UPTRAVI [Suspect]
     Active Substance: SELEXIPAG
     Dosage: 0.57 MG, BID
     Route: 048
     Dates: start: 20190305, end: 20190328
  12. UPTRAVI [Suspect]
     Active Substance: SELEXIPAG
     Dosage: 0.54 MG, BID
     Route: 048
     Dates: start: 20190419, end: 20190516
  13. UPTRAVI [Suspect]
     Active Substance: SELEXIPAG
     Route: 048
     Dates: start: 20190517, end: 20190718
  14. UPTRAVI [Suspect]
     Active Substance: SELEXIPAG
     Dosage: 0.32 MG, BID
     Route: 048
     Dates: start: 20190719, end: 20200116
  15. UPTRAVI [Suspect]
     Active Substance: SELEXIPAG
     Route: 048
     Dates: start: 20200117, end: 20200521
  16. UPTRAVI [Suspect]
     Active Substance: SELEXIPAG
     Route: 048
     Dates: start: 20200522, end: 20200820
  17. UPTRAVI [Suspect]
     Active Substance: SELEXIPAG
     Route: 048
     Dates: start: 20200821, end: 20201015
  18. UPTRAVI [Suspect]
     Active Substance: SELEXIPAG
     Route: 048
     Dates: start: 20201016
  19. OPSUMIT [Concomitant]
     Active Substance: MACITENTAN
     Indication: Pulmonary arterial hypertension
     Dates: start: 20200116
  20. OPSUMIT [Concomitant]
     Active Substance: MACITENTAN
     Dates: start: 20200117
  21. ADCIRCA [Concomitant]
     Active Substance: TADALAFIL
     Indication: Pulmonary arterial hypertension
     Route: 065
     Dates: end: 20200116
  22. ADCIRCA [Concomitant]
     Active Substance: TADALAFIL
     Route: 065
     Dates: start: 20200117
  23. PROPRANOLOL HYDROCHLORIDE [Concomitant]
     Active Substance: PROPRANOLOL HYDROCHLORIDE
     Dosage: 27 MG, QD
     Dates: start: 20180501, end: 20200716
  24. PROPRANOLOL HYDROCHLORIDE [Concomitant]
     Active Substance: PROPRANOLOL HYDROCHLORIDE
     Dates: start: 20200717
  25. FUROSEMIDE [Concomitant]
     Active Substance: FUROSEMIDE
     Dosage: 18 MG, QD
     Dates: start: 20180818
  26. FUROSEMIDE [Concomitant]
     Active Substance: FUROSEMIDE
     Dosage: UNK
     Dates: start: 20191106, end: 20191114
  27. FUROSEMIDE [Concomitant]
     Active Substance: FUROSEMIDE
     Dates: start: 20180808, end: 20200521
  28. FUROSEMIDE [Concomitant]
     Active Substance: FUROSEMIDE
     Dates: start: 20200522
  29. SPIRONOLACTONE [Concomitant]
     Active Substance: SPIRONOLACTONE
     Dosage: 18 MG, QD
     Dates: start: 20180501
  30. SPIRONOLACTONE [Concomitant]
     Active Substance: SPIRONOLACTONE
     Dates: start: 20180501, end: 20200521
  31. SPIRONOLACTONE [Concomitant]
     Active Substance: SPIRONOLACTONE
     Dates: start: 20200522
  32. WARFARIN POTASSIUM [Concomitant]
     Active Substance: WARFARIN POTASSIUM
     Dosage: 0.7 MG, QD
     Dates: start: 20190105, end: 20201125
  33. WARFARIN POTASSIUM [Concomitant]
     Active Substance: WARFARIN POTASSIUM
     Dates: start: 20201126, end: 20201129
  34. WARFARIN POTASSIUM [Concomitant]
     Active Substance: WARFARIN POTASSIUM
     Dates: start: 20201130
  35. INCREMIN [Concomitant]
     Indication: Anaemia
     Dosage: 24 MG, QD
     Dates: end: 20191104
  36. PHENOBARBITAL [Concomitant]
     Active Substance: PHENOBARBITAL
     Indication: Sedation
     Dosage: 25 MG, QD
     Dates: start: 20180808
  37. POTASSIUM CHLORIDE [Concomitant]
     Active Substance: POTASSIUM CHLORIDE
     Indication: Hypokalaemia
     Dosage: 0.9 G, QD
     Dates: start: 20180808, end: 20190321
  38. HYDROCHLOROTHIAZIDE [Concomitant]
     Active Substance: HYDROCHLOROTHIAZIDE
     Dosage: 3 MG, QD
     Dates: start: 20180817
  39. HYDROCHLOROTHIAZIDE [Concomitant]
     Active Substance: HYDROCHLOROTHIAZIDE
     Dates: start: 20191111, end: 20191119
  40. FAMOTIDINE [Concomitant]
     Active Substance: FAMOTIDINE
     Indication: Gastritis
     Dosage: 5 MG, QD
     Dates: start: 20180918
  41. ZONISAMIDE [Concomitant]
     Active Substance: ZONISAMIDE
     Indication: Epilepsy
     Dosage: 24 MG, QD
     Dates: start: 20180926
  42. LEVETIRACETAM [Concomitant]
     Active Substance: LEVETIRACETAM
     Dosage: 60 MG, QD
     Dates: start: 20180928
  43. MOSAPRIDE CITRATE [Concomitant]
     Active Substance: MOSAPRIDE CITRATE
     Indication: Gastrooesophageal reflux disease
     Dosage: 2 MG, QD
     Dates: start: 20180928
  44. EPINEPHRINE [Concomitant]
     Active Substance: EPINEPHRINE
     Indication: Postoperative care
     Dosage: QD
     Dates: start: 20191105, end: 20191105
  45. DOBUTREX [Concomitant]
     Active Substance: DOBUTAMINE HYDROCHLORIDE
     Indication: Postoperative care
     Dosage: UNK
     Dates: start: 20191105, end: 20191107
  46. MILRINONE [Concomitant]
     Active Substance: MILRINONE
     Indication: Postoperative care
     Dosage: UNK
     Dates: start: 20191105, end: 20191110
  47. HEPARIN [Concomitant]
     Active Substance: HEPARIN SODIUM
     Indication: Postoperative care
     Dosage: UNK
     Dates: start: 20191105, end: 20191115

REACTIONS (7)
  - Kawasaki^s disease [Recovering/Resolving]
  - Hepatic function abnormal [Recovering/Resolving]
  - Alanine aminotransferase increased [Recovering/Resolving]
  - Aspartate aminotransferase increased [Recovering/Resolving]
  - Pyrexia [Recovering/Resolving]
  - Tachycardia [Recovering/Resolving]
  - Off label use [Unknown]

NARRATIVE: CASE EVENT DATE: 20190418
